FAERS Safety Report 6424038-8 (Version None)
Quarter: 2009Q4

REPORT INFORMATION
  Report Type: 
  Country: None (occurrence: None)
  Receive Date: 20091102
  Receipt Date: 20091027
  Transmission Date: 20100525
  Serious: Yes (Death, Other)
  Sender: FDA-Public Use
  Company Number: DE-CELGENEUS-062-20484-09102229

PATIENT

DRUGS (2)
  1. TINZAPARIN [Suspect]
     Dosage: 90 IE ANTI-FXA/KG
     Route: 065
  2. TINZAPARIN [Suspect]
     Dosage: 4500 IE ANTI-FXA MG
     Route: 065

REACTIONS (5)
  - DEEP VEIN THROMBOSIS [None]
  - HAEMATEMESIS [None]
  - HAEMATOMA [None]
  - MUCOSAL HAEMORRHAGE [None]
  - SEPSIS [None]
